FAERS Safety Report 25776504 (Version 1)
Quarter: 2025Q3

REPORT INFORMATION
  Report Type: Spontaneous
  Country: US (occurrence: US)
  Receive Date: 20250909
  Receipt Date: 20250909
  Transmission Date: 20251020
  Serious: No
  Sender: DOMPE FARMACEUTICI
  Company Number: US-FARMAPROD-202408-3103

PATIENT
  Age: 47 Year
  Sex: Female
  Weight: 81.65 kg

DRUGS (8)
  1. OXERVATE [Suspect]
     Active Substance: CENEGERMIN-BKBJ
     Indication: Neurotrophic keratopathy
     Route: 047
     Dates: start: 20240828
  2. OXERVATE [Suspect]
     Active Substance: CENEGERMIN-BKBJ
  3. INSULIN GLARGINE [Concomitant]
     Active Substance: INSULIN GLARGINE
  4. FUROSEMIDE [Concomitant]
     Active Substance: FUROSEMIDE
  5. OZEMPIC [Concomitant]
     Active Substance: SEMAGLUTIDE
  6. METOPROLOL SUCCINATE [Concomitant]
     Active Substance: METOPROLOL SUCCINATE
  7. ELIQUIS [Concomitant]
     Active Substance: APIXABAN
  8. ACETAMINOPHEN\OXYCODONE HYDROCHLORIDE [Concomitant]
     Active Substance: ACETAMINOPHEN\OXYCODONE HYDROCHLORIDE

REACTIONS (2)
  - Treatment noncompliance [Unknown]
  - Product administration error [Unknown]

NARRATIVE: CASE EVENT DATE: 20240828
